FAERS Safety Report 19931936 (Version 1)
Quarter: 2021Q4

REPORT INFORMATION
  Report Type: Spontaneous
  Country: CN (occurrence: CN)
  Receive Date: 20211007
  Receipt Date: 20211007
  Transmission Date: 20220303
  Serious: Yes (Other)
  Sender: FDA-Public Use
  Company Number: CN-BAXTER-2021BAX031202

PATIENT
  Age: 56 Year
  Sex: Male
  Weight: 60 kg

DRUGS (8)
  1. CYCLOPHOSPHAMIDE [Suspect]
     Active Substance: CYCLOPHOSPHAMIDE
     Indication: Neoplasm malignant
     Dosage: CYCLOPHOSPHAMIDE 1.0G + 0.9% SODIUM CHLORIDE 100ML
     Route: 041
     Dates: start: 20210908, end: 20210908
  2. SODIUM CHLORIDE [Suspect]
     Active Substance: SODIUM CHLORIDE
     Indication: Medication dilution
     Dosage: RITUXIMAB 600 MG + 0.9% SODIUM CHLORIDE 500ML
     Route: 041
     Dates: start: 20210908, end: 20210908
  3. SODIUM CHLORIDE [Suspect]
     Active Substance: SODIUM CHLORIDE
     Dosage: EPIRUBICIN HYDROCHLORIDE 140 MG + 0.9% SODIUM CHLORIDE 100ML
     Route: 041
     Dates: start: 20210908, end: 20210908
  4. SODIUM CHLORIDE [Suspect]
     Active Substance: SODIUM CHLORIDE
     Dosage: CYCLOPHOSPHAMIDE 1.0G + 0.9% SODIUM CHLORIDE 100ML
     Route: 041
     Dates: start: 20210908, end: 20210908
  5. SODIUM CHLORIDE [Suspect]
     Active Substance: SODIUM CHLORIDE
     Dosage: VINCRISTINE SULFATE 2 MG + 0.9% SODIUM CHLORIDE 100ML
     Route: 041
     Dates: start: 20210908, end: 20210908
  6. EPIRUBICIN HYDROCHLORIDE [Suspect]
     Active Substance: EPIRUBICIN HYDROCHLORIDE
     Indication: Neoplasm malignant
     Dosage: EPIRUBICIN HYDROCHLORIDE 140 MG + 0.9% SODIUM CHLORIDE 100ML
     Route: 041
     Dates: start: 20210908, end: 20210908
  7. RITUXIMAB [Suspect]
     Active Substance: RITUXIMAB
     Indication: Neoplasm malignant
     Dosage: RITUXIMAB 600 MG + 0.9% SODIUM CHLORIDE 500ML
     Route: 041
     Dates: start: 20210908, end: 20210908
  8. VINCRISTINE SULFATE [Suspect]
     Active Substance: VINCRISTINE SULFATE
     Indication: Neoplasm malignant
     Dosage: VINCRISTINE SULFATE 2 MG + 0.9% SODIUM CHLORIDE 100ML
     Route: 041
     Dates: start: 20210908, end: 20210908

REACTIONS (4)
  - Pyrexia [Recovered/Resolved]
  - Abdominal pain upper [Recovered/Resolved]
  - Nausea [Recovered/Resolved]
  - Vomiting [Recovered/Resolved]

NARRATIVE: CASE EVENT DATE: 20210908
